FAERS Safety Report 10014980 (Version 1)
Quarter: 2014Q1

REPORT INFORMATION
  Report Type: Spontaneous
  Country: US (occurrence: US)
  Receive Date: 20140317
  Receipt Date: 20140317
  Transmission Date: 20141002
  Serious: No
  Sender: FDA-Public Use
  Company Number: US-B.I. PHARMACEUTICALS,INC./RIDGEFIELD-2014-BI-11276BP

PATIENT
  Sex: Male

DRUGS (8)
  1. COMBIVENT [Suspect]
     Indication: PRODUCT USED FOR UNKNOWN INDICATION
     Dosage: DOSE PER APPLICATION: 20 MCG / 100 MCG; DAILY DOSE: 80 MCG/400 MCG
     Route: 055
  2. ATROVENT [Concomitant]
     Dosage: FORMULATION: INHALATION SPRAY
     Route: 055
  3. FLOVENT [Concomitant]
     Dosage: FORMULATION: INHALATION SPRAY
     Route: 055
  4. COREG [Concomitant]
     Route: 048
  5. MOBIC [Concomitant]
     Route: 048
  6. PREDNISONE [Concomitant]
     Route: 048
  7. MICARDIS [Concomitant]
     Route: 048
  8. VENTOLIN [Concomitant]
     Dosage: FORMULATION: INHALATION SPRAY
     Route: 055

REACTIONS (1)
  - Overdose [Recovered/Resolved]
